FAERS Safety Report 8826181 (Version 1)
Quarter: 2012Q4

REPORT INFORMATION
  Report Type: 
  Country: BR (occurrence: BR)
  Receive Date: 20121005
  Receipt Date: 20121005
  Transmission Date: 20130627
  Serious: Yes (Other)
  Sender: FDA-Public Use
  Company Number: PHHY2012BR087025

PATIENT
  Sex: Female

DRUGS (4)
  1. MYFORTIC [Suspect]
     Route: 048
  2. LIPITOR [Concomitant]
  3. TACROLIMUS [Concomitant]
  4. DEFLAZACORT [Concomitant]

REACTIONS (3)
  - Weight decreased [Unknown]
  - Eating disorder [Unknown]
  - Cytomegalovirus infection [Unknown]
